FAERS Safety Report 4598493-2 (Version None)
Quarter: 2005Q1

REPORT INFORMATION
  Report Type: 
  Country: None (occurrence: None)
  Receive Date: 20050303
  Receipt Date: 20050303
  Transmission Date: 20050727
  Serious: Yes (Hospitalization)
  Sender: FDA-Public Use
  Company Number: None

PATIENT

DRUGS (2)
  1. GEMCITABINE [Suspect]
     Indication: PANCREATIC CARCINOMA METASTATIC
     Dosage: 900    MG/M2    INTRAVENOU
     Route: 042
     Dates: start: 20040923, end: 20050210
  2. IRINOTECAN HCL [Suspect]
     Indication: PANCREATIC CARCINOMA METASTATIC
     Dosage: 75   MG/M2   INTRAVENOU
     Route: 042
     Dates: start: 20040923, end: 20050210

REACTIONS (4)
  - CHEST PAIN [None]
  - DYSPNOEA [None]
  - ISCHAEMIA [None]
  - PULMONARY EMBOLISM [None]
